FAERS Safety Report 7542844-3 (Version None)
Quarter: 2011Q2

REPORT INFORMATION
  Report Type: 
  Country: None (occurrence: None)
  Receive Date: 20110606
  Receipt Date: 20110518
  Transmission Date: 20111010
  Serious: Yes (Other)
  Sender: FDA-Public Use
  Company Number: 2011SA022723

PATIENT
  Age: 51 Year
  Sex: Male

DRUGS (2)
  1. OPTICLICK / UNKNOWN / UNKNOWN [Suspect]
     Indication: TYPE 2 DIABETES MELLITUS
  2. LANTUS [Suspect]
     Indication: TYPE 2 DIABETES MELLITUS
     Dosage: 133 UNIT(S); DAILY; SUBCUTANEOUS
     Route: 058

REACTIONS (5)
  - MYOCARDIAL INFARCTION [None]
  - DRUG INEFFECTIVE [None]
  - DEVICE MALFUNCTION [None]
  - DIABETES MELLITUS INADEQUATE CONTROL [None]
  - PRODUCT QUALITY ISSUE [None]
